FAERS Safety Report 20769956 (Version 1)
Quarter: 2022Q2

REPORT INFORMATION
  Report Type: Spontaneous
  Country: NL (occurrence: NL)
  Receive Date: 20220429
  Receipt Date: 20220429
  Transmission Date: 20220721
  Serious: Yes (Hospitalization)
  Sender: FDA-Public Use
  Company Number: None

PATIENT
  Sex: Female
  Weight: 55 kg

DRUGS (6)
  1. IBUPROFEN [Suspect]
     Active Substance: IBUPROFEN
     Indication: Pain
     Dosage: ONE-TIME 1 TABLET,IBUPROFEN DRAGEE 400MG / BRAND NAME NOT SPECIFIED, UNIT DOSE 400MG
     Dates: start: 20220408, end: 20220408
  2. OMEPRAZOLE [Concomitant]
     Active Substance: OMEPRAZOLE
     Dosage: GASTRO-RESISTANT CAPSULE, 40 MG,OMEPRAZOL CAPSULE MSR 40MG / BRAND NAME NOT SPECIFIED,THERAPY START
  3. ATENOLOL [Concomitant]
     Active Substance: ATENOLOL
     Dosage: TABLET, 50 MG,ATENOLOL TABLET  50MG / BRAND NAME NOT SPECIFIED,THERAPY START DATE AND END DATE : ASK
  4. ROSUVASTATIN [Concomitant]
     Active Substance: ROSUVASTATIN
     Dosage: TABLET, 10 MG,ROSUVASTATINE TABLET 10MG / BRAND NAME NOT SPECIFIED,THERAPY START DATE AND END DATE :
  5. CHOLECALCIFEROL [Concomitant]
     Active Substance: CHOLECALCIFEROL
     Dosage: CAPSULE, 800 UNITS,COLECALCIFEROL CAPSULE    800IE / BRAND NAME NOT SPECIFIED,THERAPY START DATE AND
  6. ALENDRONIC ACID [Concomitant]
     Active Substance: ALENDRONIC ACID
     Dosage: TABLET, 70 MG,ALENDRONIC ACID TABLET 70MG / BRAND NAME NOT SPECIFIED,THERAPY START DATE AND END DATE

REACTIONS (1)
  - Anaphylactic shock [Recovering/Resolving]
